FAERS Safety Report 22660880 (Version 1)
Quarter: 2023Q2

REPORT INFORMATION
  Report Type: Spontaneous
  Country: US (occurrence: US)
  Receive Date: 20230630
  Receipt Date: 20230630
  Transmission Date: 20230722
  Serious: Yes (Other)
  Sender: FDA-Public Use
  Company Number: US-SUN PHARMACEUTICAL INDUSTRIES LTD-2023R1-396650

PATIENT
  Age: 14 Month
  Sex: Female

DRUGS (4)
  1. ERYTHROMYCIN [Suspect]
     Active Substance: ERYTHROMYCIN
     Indication: Hyper IgE syndrome
     Dosage: UNK
     Route: 048
  2. CEPHALEXIN [Suspect]
     Active Substance: CEPHALEXIN
     Indication: Hyper IgE syndrome
     Dosage: UNK
     Route: 048
  3. MUPIROCIN [Suspect]
     Active Substance: MUPIROCIN
     Indication: Hyper IgE syndrome
     Dosage: UNK
     Route: 061
  4. SULFAMETHOXAZOLE\TRIMETHOPRIM [Suspect]
     Active Substance: SULFAMETHOXAZOLE\TRIMETHOPRIM
     Indication: Hyper IgE syndrome
     Dosage: UNK
     Route: 048

REACTIONS (1)
  - Drug ineffective [Unknown]
